FAERS Safety Report 6369021-6 (Version None)
Quarter: 2009Q3

REPORT INFORMATION
  Report Type: 
  Country: None (occurrence: None)
  Receive Date: 20090922
  Receipt Date: 20090910
  Transmission Date: 20100115
  Serious: Yes (Other)
  Sender: FDA-Public Use
  Company Number: PHEH2009US10262

PATIENT
  Sex: Female

DRUGS (13)
  1. EXJADE [Suspect]
     Indication: SERUM FERRITIN INCREASED
     Dosage: 2000 MG/DAY
     Route: 048
     Dates: start: 20090716, end: 20090819
  2. CALCIUM CARBONATE [Concomitant]
     Dosage: 600 DAILY
     Route: 048
  3. PRILOSEC [Concomitant]
     Dosage: 20 MG, QD
     Route: 048
  4. LOPERAMIDE [Concomitant]
     Dosage: 2 MG, QD PRN
  5. MULTI-VITAMINS [Concomitant]
     Dosage: UNK
  6. ACTONEL [Concomitant]
     Dosage: 35 MG, QW
  7. COMBIVENT                               /GFR/ [Concomitant]
     Dosage: 103/18 MCG TID
  8. ASPIRIN [Concomitant]
     Dosage: 81 MG, QD
  9. TYLENOL (CAPLET) [Concomitant]
     Indication: PAIN
     Dosage: 650 MG PRN
  10. ASPERCREME [Concomitant]
     Dosage: UNK, PRN
  11. SERTRALINE HCL [Concomitant]
     Dosage: 1 1/2 TAB QD
     Route: 048
  12. VITAMIN D [Concomitant]
     Dosage: 1000 UNITS QD
  13. LOSARTAN POTASSIUM [Concomitant]
     Dosage: 100 MG, QD

REACTIONS (7)
  - BLINDNESS [None]
  - DEAFNESS [None]
  - EYE PRURITUS [None]
  - OCULAR HYPERAEMIA [None]
  - PAIN [None]
  - PRURITUS [None]
  - SENSATION OF FOREIGN BODY [None]
